FAERS Safety Report 21050975 (Version 1)
Quarter: 2022Q3

REPORT INFORMATION
  Report Type: Report from Study
  Country: BR (occurrence: BR)
  Receive Date: 20220707
  Receipt Date: 20220707
  Transmission Date: 20221026
  Serious: Yes (Other)
  Sender: FDA-Public Use
  Company Number: BR-BEH-2022147096

PATIENT
  Sex: Male

DRUGS (1)
  1. HUMAN IMMUNOGLOBULIN G [Suspect]
     Active Substance: HUMAN IMMUNOGLOBULIN G
     Route: 064

REACTIONS (4)
  - Neonatal respiratory distress [Unknown]
  - Foetal exposure during pregnancy [Unknown]
  - COVID-19 [Unknown]
  - Foetal exposure during pregnancy [Unknown]
